FAERS Safety Report 8909031 (Version 1)
Quarter: 2012Q4

REPORT INFORMATION
  Report Type: 
  Country: FR (occurrence: FR)
  Receive Date: 20121114
  Receipt Date: 20121114
  Transmission Date: 20130627
  Serious: Yes (Other)
  Sender: FDA-Public Use
  Company Number: PHHY2012FR091430

PATIENT
  Age: 54 Year
  Sex: Female
  Weight: 45 kg

DRUGS (11)
  1. SANDOSTATINE LAR [Suspect]
     Indication: GASTROINTESTINAL NEOPLASM
     Dosage: 30 mg, one injection monthly
     Route: 030
     Dates: start: 20120908
  2. SANDOSTATINE LAR [Suspect]
     Dosage: 30 mg, one injection monthly
     Route: 030
     Dates: start: 20120909
  3. ALDACTONE [Concomitant]
     Indication: HYPERTENSION
     Dosage: 25 mg, UNK
  4. ALDACTONE [Concomitant]
     Indication: CARDIAC FAILURE
  5. LASILIX [Concomitant]
     Indication: HYPERTENSION
     Dosage: 40 mg, UNK
  6. LASILIX [Concomitant]
     Indication: CARDIAC FAILURE
  7. TEMERIT [Concomitant]
     Indication: HYPERTENSION
     Dosage: 2.5 mg, UNK
  8. TEMERIT [Concomitant]
     Indication: CARDIAC FAILURE
  9. TRIATEC [Concomitant]
     Indication: HYPERTENSION
     Dosage: 1.25 mg, UNK
  10. TRIATEC [Concomitant]
     Indication: CARDIAC FAILURE
  11. XANAX [Concomitant]
     Indication: ANXIETY

REACTIONS (11)
  - Injection site induration [Recovering/Resolving]
  - Effusion [Recovering/Resolving]
  - Pyrexia [Recovering/Resolving]
  - Night sweats [Recovering/Resolving]
  - Communication disorder [Recovering/Resolving]
  - Flushing [Recovering/Resolving]
  - Injection site pain [Recovering/Resolving]
  - Diarrhoea [Recovering/Resolving]
  - Decreased appetite [Recovering/Resolving]
  - Abdominal pain [Recovering/Resolving]
  - Asthenia [Recovering/Resolving]
